FAERS Safety Report 9382523 (Version 3)
Quarter: 2013Q3

REPORT INFORMATION
  Report Type: Spontaneous
  Country: IT (occurrence: IT)
  Receive Date: 20130703
  Receipt Date: 20130823
  Transmission Date: 20140515
  Serious: Yes (Hospitalization)
  Sender: FDA-Public Use
  Company Number: PHHY2013IT067370

PATIENT
  Age: 40 Year
  Sex: Female

DRUGS (4)
  1. DICLOFENAC [Suspect]
     Indication: SCIATICA
     Dosage: 1 DF, DAILY
     Route: 030
     Dates: start: 20130506, end: 20130510
  2. PARACETAMOL [Suspect]
     Indication: SCIATICA
     Dosage: 1500 MG, DAILY
     Route: 048
     Dates: start: 20130510, end: 20130520
  3. THIOCOLCHICOSIDE [Suspect]
     Indication: SCIATICA
     Dosage: 1 DF, DAILY
     Route: 030
     Dates: start: 20130511, end: 20130512
  4. FLURBIPROFEN [Suspect]
     Indication: SCIATICA
     Dosage: 1 DF, DAILY
     Route: 058
     Dates: start: 20130515, end: 20130522

REACTIONS (1)
  - Hepatitis acute [Recovering/Resolving]
